FAERS Safety Report 6471898-0 (Version None)
Quarter: 2009Q4

REPORT INFORMATION
  Report Type: 
  Country: None (occurrence: None)
  Receive Date: 20091203
  Receipt Date: 20091123
  Transmission Date: 20100525
  Serious: Yes (Other)
  Sender: FDA-Public Use
  Company Number: GB-WYE-G04622009

PATIENT
  Sex: Male
  Weight: 123 kg

DRUGS (11)
  1. VENLAFAXINE HYDROCHLORIDE [Suspect]
     Indication: BIPOLAR DISORDER
     Dosage: 150MG, MORNING DOSE
     Route: 048
     Dates: start: 20090218, end: 20091120
  2. VENLAFAXINE HYDROCHLORIDE [Interacting]
     Dosage: 225MG, NOCTURNAL DOSE
     Route: 048
     Dates: start: 20090208, end: 20091021
  3. VENLAFAXINE HYDROCHLORIDE [Interacting]
     Dosage: UNKNOWN
     Dates: start: 20080530
  4. FLUOXETINE [Concomitant]
     Indication: BIPOLAR DISORDER
     Dosage: UNKNOWN
     Dates: start: 20091022
  5. QUETIAPINE [Interacting]
     Indication: BIPOLAR DISORDER
     Dosage: 600MG, NOCTURNAL UNIT DOSE
     Route: 048
     Dates: start: 20081216
  6. QUETIAPINE [Interacting]
     Dosage: UNKNOWN
     Dates: start: 20090101
  7. QUETIAPINE [Interacting]
     Dosage: 300MG, NOCTURNAL UNIT DOSE
     Dates: start: 20090916
  8. LITHIUM [Interacting]
     Indication: BIPOLAR DISORDER
     Dosage: 1000MG, NOCTURNAL DOSE
     Dates: start: 20081208
  9. LITHIUM [Interacting]
     Dosage: UNKNOWN
     Dates: start: 20090101
  10. LITHIUM [Interacting]
     Dosage: 800MG, NOCTURNAL DOSE
     Route: 048
     Dates: start: 20031107
  11. CHAMPIX [Interacting]
     Indication: SMOKING CESSATION THERAPY
     Route: 048
     Dates: start: 20090512, end: 20090819

REACTIONS (6)
  - ANXIETY [None]
  - BIPOLAR DISORDER [None]
  - CONDITION AGGRAVATED [None]
  - DEPRESSION [None]
  - DRUG INEFFECTIVE [None]
  - DRUG INTERACTION [None]
